FAERS Safety Report 8831243 (Version 1)
Quarter: 2012Q4

REPORT INFORMATION
  Report Type: 
  Country: US (occurrence: US)
  Receive Date: 20121008
  Receipt Date: 20121008
  Transmission Date: 20130627
  Serious: Yes (Other)
  Sender: FDA-Public Use
  Company Number: US-009507513-1209USA011840

PATIENT
  Age: 43 Year
  Sex: Female
  Weight: 64 kg

DRUGS (3)
  1. PRINIVIL [Suspect]
     Dosage: 2.5 mg, per day
     Route: 048
  2. NEO-SYNEPHRINE INJECTION [Concomitant]
     Dosage: 80 ug/mL
     Route: 040
  3. NEO-SYNEPHRINE INJECTION [Concomitant]
     Dosage: 320 ug/mL
     Route: 042

REACTIONS (1)
  - Vasoplegia syndrome [Recovered/Resolved]
